FAERS Safety Report 18199194 (Version 1)
Quarter: 2020Q3

REPORT INFORMATION
  Report Type: Spontaneous
  Country: US (occurrence: US)
  Receive Date: 20200826
  Receipt Date: 20200826
  Transmission Date: 20201103
  Serious: No
  Sender: FDA-Public Use
  Company Number: US-BAXTER-2020BAX017339

PATIENT
  Sex: Female

DRUGS (1)
  1. SUPRANE [Suspect]
     Active Substance: DESFLURANE
     Indication: OCCUPATIONAL EXPOSURE TO PRODUCT
     Dosage: 351.6MG/240ML 6LIIN
     Route: 055

REACTIONS (3)
  - Dizziness [Unknown]
  - Occupational exposure to product [Unknown]
  - Product container issue [Unknown]
